FAERS Safety Report 13321908 (Version 2)
Quarter: 2017Q1

REPORT INFORMATION
  Report Type: Spontaneous
  Country: US (occurrence: US)
  Receive Date: 20170310
  Receipt Date: 20170323
  Transmission Date: 20170428
  Serious: Yes (Hospitalization, Other)
  Sender: FDA-Public Use
  Company Number: US-PFIZER INC-2017102364

PATIENT
  Age: 73 Year
  Sex: Female
  Weight: 116.1 kg

DRUGS (1)
  1. IBRANCE [Suspect]
     Active Substance: PALBOCICLIB
     Indication: BREAST CANCER METASTATIC
     Dosage: 125 MG, CYCLIC (D1-21 Q 28 DAYS)
     Route: 048
     Dates: start: 20170221, end: 20170224

REACTIONS (3)
  - Loss of consciousness [Unknown]
  - Speech disorder [Unknown]
  - Headache [Unknown]

NARRATIVE: CASE EVENT DATE: 20170303
